FAERS Safety Report 4630634-0 (Version None)
Quarter: 2005Q2

REPORT INFORMATION
  Report Type: 
  Country: None (occurrence: None)
  Receive Date: 20050408
  Receipt Date: 20050315
  Transmission Date: 20051028
  Serious: Yes (Hospitalization)
  Sender: FDA-Public Use
  Company Number: GB-BRISTOL-MYERS SQUIBB COMPANY-12898607

PATIENT
  Age: 63 Year
  Sex: Female
  Weight: 94 kg

DRUGS (3)
  1. CISPLATIN [Suspect]
     Indication: BLADDER CANCER
     Dosage: CUMULATIVE DOSE:  0.442
     Dates: start: 20031024, end: 20031124
  2. PACLITAXEL [Interacting]
     Indication: BLADDER CANCER
     Dosage: CUMULATIVE DOSE:  0.944
     Dates: start: 20031024, end: 20041204
  3. GEMCITABINE [Suspect]
     Indication: BLADDER CANCER
     Dosage: CUMULATIVE DOSE:  9.450
     Dates: start: 20031024, end: 20031204

REACTIONS (1)
  - PULMONARY FIBROSIS [None]
